FAERS Safety Report 7741648-6 (Version None)
Quarter: 2011Q3

REPORT INFORMATION
  Report Type: 
  Country: None (occurrence: None)
  Receive Date: 20110911
  Receipt Date: 20110906
  Transmission Date: 20111222
  Serious: Yes (Hospitalization, Other)
  Sender: FDA-Public Use
  Company Number: US-BRISTOL-MYERS SQUIBB COMPANY-15573868

PATIENT
  Age: 60 Year
  Sex: Male

DRUGS (7)
  1. VALCYTE [Concomitant]
     Indication: ANTIVIRAL PROPHYLAXIS
     Route: 048
     Dates: start: 20060720, end: 20061106
  2. TOPROL-XL [Concomitant]
     Dates: start: 20070117
  3. CRESTOR [Concomitant]
     Dates: start: 20080128
  4. MYCOPHENOLATE MOFETIL [Suspect]
     Indication: RENAL TRANSPLANT
     Route: 048
     Dates: start: 20060719
  5. PREDNISONE [Suspect]
     Indication: RENAL TRANSPLANT
     Dosage: PRODUCT DOSE TITRATED FROM 21JUL06 TO 25SEP06; DOSE INCREASED TO 20MG MAR11
     Route: 048
     Dates: start: 20060721
  6. BELATACEPT [Suspect]
     Indication: RENAL TRANSPLANT
     Route: 042
     Dates: start: 20060719, end: 20110321
  7. LOSARTAN POTASSIUM [Concomitant]
     Dates: start: 20090316

REACTIONS (1)
  - EPSTEIN-BARR VIRUS ASSOCIATED LYMPHOPROLIFERATIVE DISORDER [None]
